FAERS Safety Report 5900215-7 (Version None)
Quarter: 2008Q3

REPORT INFORMATION
  Report Type: 
  Country: None (occurrence: None)
  Receive Date: 20080926
  Receipt Date: 20080922
  Transmission Date: 20090109
  Serious: Yes (Hospitalization)
  Sender: FDA-Public Use
  Company Number: DE-JNJFOC-20080602303

PATIENT
  Sex: Female
  Weight: 64 kg

DRUGS (12)
  1. PREZISTA [Suspect]
     Indication: HIV INFECTION
     Route: 048
  2. VICRIVIROC [Suspect]
     Indication: HIV INFECTION
     Route: 048
  3. TRUVADA [Suspect]
     Indication: HIV INFECTION
     Route: 048
  4. ISENTRESS [Suspect]
     Indication: HIV INFECTION
     Route: 048
  5. ACETAMINOPHEN [Concomitant]
     Indication: MYALGIA
     Route: 048
  6. ACETAMINOPHEN [Concomitant]
     Indication: HEADACHE
     Route: 048
  7. NOVAMINSULFON [Concomitant]
     Indication: MYALGIA
     Route: 048
  8. NOVAMINSULFON [Concomitant]
     Indication: HEADACHE
     Route: 048
  9. THOMAPYRIN [Concomitant]
     Indication: MYALGIA
     Route: 048
  10. THOMAPYRIN [Concomitant]
     Indication: HEADACHE
     Route: 048
  11. POTASSIUM CHLORIDE [Concomitant]
     Indication: HYPOKALAEMIA
  12. ENALAPRIL MALEATE [Concomitant]

REACTIONS (2)
  - HEPATITIS TOXIC [None]
  - SEPSIS [None]
